FAERS Safety Report 25431592 (Version 1)
Quarter: 2025Q2

REPORT INFORMATION
  Report Type: Spontaneous
  Country: PL (occurrence: PL)
  Receive Date: 20250613
  Receipt Date: 20250613
  Transmission Date: 20250716
  Serious: Yes (Other)
  Sender: BRISTOL-MYERS SQUIBB COMPANY
  Company Number: PL-BRISTOL-MYERS SQUIBB COMPANY-2025-083944

PATIENT
  Sex: Male

DRUGS (4)
  1. NIVOLUMAB [Suspect]
     Active Substance: NIVOLUMAB
     Indication: Squamous cell carcinoma of lung
     Dates: start: 20230314
  2. IPILIMUMAB [Suspect]
     Active Substance: IPILIMUMAB
     Indication: Squamous cell carcinoma of lung
     Dates: start: 20230314
  3. PACLITAXEL [Suspect]
     Active Substance: PACLITAXEL
     Indication: Squamous cell carcinoma of lung
     Dates: start: 20230314
  4. CARBOPLATIN [Suspect]
     Active Substance: CARBOPLATIN
     Indication: Squamous cell carcinoma of lung
     Dates: start: 20230314

REACTIONS (1)
  - Musculoskeletal toxicity [Unknown]
